FAERS Safety Report 10071207 (Version 1)
Quarter: 2014Q2

REPORT INFORMATION
  Report Type: Spontaneous
  Country: US (occurrence: US)
  Receive Date: 20140410
  Receipt Date: 20140410
  Transmission Date: 20141212
  Serious: No
  Sender: FDA-Public Use
  Company Number: US-BAYER-2014-047291

PATIENT
  Sex: 0

DRUGS (2)
  1. BAYER HEADACHE RELIEF [Suspect]
  2. ALEVE CAPLET [Suspect]

REACTIONS (2)
  - Drug ineffective [None]
  - Drug ineffective [None]
